FAERS Safety Report 20799717 (Version 2)
Quarter: 2022Q2

REPORT INFORMATION
  Report Type: Spontaneous
  Country: DE (occurrence: DE)
  Receive Date: 20220509
  Receipt Date: 20220622
  Transmission Date: 20220721
  Serious: Yes (Hospitalization, Other)
  Sender: FDA-Public Use
  Company Number: DE-JNJFOC-20190805636

PATIENT
  Age: 5 Decade
  Sex: Female

DRUGS (12)
  1. CELECOXIB [Suspect]
     Active Substance: CELECOXIB
     Indication: Axial spondyloarthritis
     Dosage: 200 MILLIGRAM, ONCE A DAY (7 DAYS PER WEEK)
     Route: 065
     Dates: start: 20170918, end: 20181105
  2. CELECOXIB [Suspect]
     Active Substance: CELECOXIB
     Dosage: 800 MILLIGRAM, EVERY WEEK
     Route: 065
     Dates: start: 20190101, end: 20190501
  3. CELECOXIB [Suspect]
     Active Substance: CELECOXIB
     Dosage: 200 MILLIGRAM (7 DAYS PER WEEK)
     Route: 065
     Dates: start: 20191107, end: 20201215
  4. NAPROXEN [Suspect]
     Active Substance: NAPROXEN
     Indication: Axial spondyloarthritis
     Dosage: 500 MILLIGRAM, ONCE A DAY (7 DAYS PER WEEK)
     Route: 065
     Dates: start: 20210608
  5. INFLIXIMAB [Suspect]
     Active Substance: INFLIXIMAB
     Indication: Axial spondyloarthritis
     Dosage: 5 MILLIGRAM, EVERY WEEK
     Route: 048
     Dates: start: 20120101, end: 20181105
  6. INFLIXIMAB [Suspect]
     Active Substance: INFLIXIMAB
     Dosage: 5 MILLIGRAM, EVERY WEEK
     Route: 048
     Dates: start: 20190404
  7. INFLIXIMAB [Suspect]
     Active Substance: INFLIXIMAB
     Dosage: 120 MILLIGRAM 2 WEEK
     Route: 065
     Dates: start: 20210915
  8. SIMPONI [Suspect]
     Active Substance: GOLIMUMAB
     Indication: Ankylosing spondylitis
     Dosage: 50 MILLIGRAM 4 WEEK
     Route: 058
     Dates: start: 20180226, end: 20191010
  9. SIMPONI [Suspect]
     Active Substance: GOLIMUMAB
     Indication: Axial spondyloarthritis
     Dosage: 50 MILLIGRAM 6 WEEK
     Route: 058
     Dates: start: 20191128
  10. SIMPONI [Suspect]
     Active Substance: GOLIMUMAB
     Dosage: 50 MILLIGRAM 4 WEEK
     Route: 058
     Dates: start: 20200502, end: 20210515
  11. SIMPONI [Suspect]
     Active Substance: GOLIMUMAB
     Dosage: 100 MILLIGRAM 4 WEEK
     Route: 058
     Dates: start: 20210615, end: 20210815
  12. ACEMETACIN [Concomitant]
     Active Substance: ACEMETACIN
     Indication: Product used for unknown indication
     Dosage: 180 MILLIGRAM
     Route: 065
     Dates: start: 20181105

REACTIONS (19)
  - Multiple sclerosis [Unknown]
  - Axial spondyloarthritis [Recovered/Resolved]
  - Rotator cuff syndrome [Recovered/Resolved]
  - Upper respiratory tract infection [Unknown]
  - Residual urine volume increased [Recovered/Resolved]
  - Postoperative adhesion [Recovered/Resolved]
  - Ovarian cyst [Unknown]
  - Urinary tract infection [Unknown]
  - Laryngitis [Unknown]
  - Osteochondrosis [Recovered/Resolved]
  - Back pain [Recovered/Resolved]
  - Hypertonic bladder [Unknown]
  - Intervertebral disc protrusion [Recovered/Resolved]
  - Diagnostic procedure [Recovered/Resolved]
  - Off label use [Unknown]
  - Product use issue [Unknown]
  - Rash [Unknown]
  - Functional gastrointestinal disorder [Unknown]
  - Gastritis [Unknown]

NARRATIVE: CASE EVENT DATE: 20190304
